FAERS Safety Report 9345517 (Version 1)
Quarter: 2013Q2

REPORT INFORMATION
  Report Type: Spontaneous
  Country: US (occurrence: US)
  Receive Date: 20130613
  Receipt Date: 20130613
  Transmission Date: 20140414
  Serious: Yes (Other)
  Sender: FDA-Public Use
  Company Number: US-JNJFOC-20130603198

PATIENT
  Sex: 0

DRUGS (1)
  1. IBUPROFEN [Suspect]
     Indication: PATENT DUCTUS ARTERIOSUS
     Route: 065

REACTIONS (2)
  - Oxygen saturation decreased [Unknown]
  - Off label use [Unknown]
